FAERS Safety Report 12716791 (Version 5)
Quarter: 2017Q1

REPORT INFORMATION
  Report Type: Report from Study
  Country: GB (occurrence: GB)
  Receive Date: 20160906
  Receipt Date: 20170215
  Transmission Date: 20170428
  Serious: Yes (Death, Hospitalization, Other)
  Sender: FDA-Public Use
  Company Number: GB-INCYTE CORPORATION-2015IN001591

PATIENT
  Age: 78 Year
  Sex: Female
  Weight: 58 kg

DRUGS (1)
  1. JAKAVI [Suspect]
     Active Substance: RUXOLITINIB
     Indication: MYELOFIBROSIS
     Dosage: 15 MG, BID
     Route: 048
     Dates: start: 20131125, end: 20150407

REACTIONS (12)
  - Septic shock [Unknown]
  - Intestinal perforation [Fatal]
  - Pleural effusion [Not Recovered/Not Resolved]
  - Atelectasis [Not Recovered/Not Resolved]
  - Pneumonia [Unknown]
  - Intestinal ischaemia [Fatal]
  - Haemoglobin decreased [Not Recovered/Not Resolved]
  - Respiratory failure [Not Recovered/Not Resolved]
  - Sepsis [Fatal]
  - Pneumatosis intestinalis [Unknown]
  - Influenza like illness [Unknown]
  - Pneumoperitoneum [Unknown]

NARRATIVE: CASE EVENT DATE: 20150324
